FAERS Safety Report 8621857-4 (Version None)
Quarter: 2012Q3

REPORT INFORMATION
  Report Type: 
  Country: None (occurrence: None)
  Receive Date: 20120822
  Receipt Date: 20120822
  Transmission Date: 20120928
  Serious: No
  Sender: FDA-Public Use
  Company Number: None

PATIENT
  Age: 58 Year
  Sex: Female
  Weight: 87.0906 kg

DRUGS (1)
  1. HYDROXYCHLOROQUIN 200MG/ BID ORAL [Suspect]
     Indication: SYSTEMIC LUPUS ERYTHEMATOSUS
     Dosage: 200MG/ BID ORAL
     Route: 048
     Dates: start: 20120801

REACTIONS (4)
  - GASTRIC DISORDER [None]
  - HYPERSENSITIVITY [None]
  - PRODUCT SUBSTITUTION ISSUE [None]
  - RASH [None]
